FAERS Safety Report 16652325 (Version 7)
Quarter: 2020Q1

REPORT INFORMATION
  Report Type: Report from Study
  Country: US (occurrence: US)
  Receive Date: 20190731
  Receipt Date: 20200309
  Transmission Date: 20200409
  Serious: Yes (Hospitalization, Other)
  Sender: FDA-Public Use
  Company Number: US-MALLINCKRODT-T201802276

PATIENT
  Age: 57 Year
  Sex: Female

DRUGS (12)
  1. REPOSITORY CORTICOTROPIN INJECTION [Suspect]
     Active Substance: CORTICOTROPIN
     Dosage: 40 UNITS / 0.5 ML 2 TIMES PER WEEK MONDAY AND THURSDAY
     Route: 058
     Dates: start: 2018
  2. REPOSITORY CORTICOTROPIN INJECTION [Suspect]
     Active Substance: CORTICOTROPIN
     Dosage: 40 UNITS / 0.5 ML, 2 TIMES PER WEEK MONDAY AND THURSDAY
     Route: 058
  3. REPOSITORY CORTICOTROPIN INJECTION [Suspect]
     Active Substance: CORTICOTROPIN
     Dosage: 40 UNITS/0.5 ML, 2 TIMES PER WEEK MONDAY AND THURSDAY
     Route: 058
  4. PREDNISONE. [Suspect]
     Active Substance: PREDNISONE
     Indication: PRODUCT USED FOR UNKNOWN INDICATION
     Dosage: UNK
     Route: 065
  5. PREDNISONE. [Suspect]
     Active Substance: PREDNISONE
     Dosage: 10 MILLIGRAM, QD
     Route: 065
  6. REPOSITORY CORTICOTROPIN INJECTION [Suspect]
     Active Substance: CORTICOTROPIN
     Dosage: 40 UNITS / 0.5 ML 2 TIMES PER WEEK MONDAY AND THURSDAY
     Route: 058
  7. REPOSITORY CORTICOTROPIN INJECTION [Suspect]
     Active Substance: CORTICOTROPIN
     Dosage: 40 UNITS / .5 ML (UNKNOWN) , 2 TIMES PER WEEK (MONDAY AND THURSDAY)
     Route: 058
     Dates: end: 20191231
  8. REPOSITORY CORTICOTROPIN INJECTION [Suspect]
     Active Substance: CORTICOTROPIN
     Dosage: 40 UNITS / 0.5 ML 2 TIMES PER WEEK MONDAY AND THURSDAY
     Route: 058
     Dates: start: 2018, end: 2018
  9. PREDNISONE. [Suspect]
     Active Substance: PREDNISONE
     Dosage: 5 MILLIGRAM, QD
     Route: 065
  10. PREDNISONE. [Suspect]
     Active Substance: PREDNISONE
     Dosage: 10 MILLIGRAM, QD
     Route: 065
     Dates: start: 20191201
  11. REPOSITORY CORTICOTROPIN INJECTION [Suspect]
     Active Substance: CORTICOTROPIN
     Indication: PULMONARY SARCOIDOSIS
     Dosage: 40 UNITS/0.5 ML 2 TIMES PER WEEK MONDAY AND THURSDAY
     Route: 058
     Dates: start: 20180514, end: 2018
  12. REPOSITORY CORTICOTROPIN INJECTION [Suspect]
     Active Substance: CORTICOTROPIN
     Dosage: 40 UNITS/0.5 ML, 2 TIMES PER WEEK MONDAY AND THURSDAY
     Route: 058
     Dates: start: 2019, end: 20191128

REACTIONS (34)
  - Lymphadenopathy [Unknown]
  - Loss of consciousness [Unknown]
  - Pain [Unknown]
  - Hypoaesthesia oral [Unknown]
  - Pulmonary function test decreased [Unknown]
  - Increased appetite [Unknown]
  - Lower respiratory tract infection [Unknown]
  - Road traffic accident [Unknown]
  - Dysphagia [Unknown]
  - Hyperhidrosis [Unknown]
  - White blood cell count increased [Unknown]
  - Hepatomegaly [Unknown]
  - Nausea [Not Recovered/Not Resolved]
  - Weight increased [Not Recovered/Not Resolved]
  - Concussion [Unknown]
  - Fatigue [Unknown]
  - Hypersomnia [Unknown]
  - Fluid retention [Unknown]
  - Diabetes mellitus [Unknown]
  - Weight decreased [Not Recovered/Not Resolved]
  - Cough [Not Recovered/Not Resolved]
  - Arteriosclerosis [Unknown]
  - Back pain [Unknown]
  - Hypoaesthesia [Unknown]
  - Hepatic steatosis [Unknown]
  - Decreased appetite [Not Recovered/Not Resolved]
  - Thirst [Unknown]
  - Visual impairment [Unknown]
  - Post-traumatic neck syndrome [Unknown]
  - Malaise [Not Recovered/Not Resolved]
  - Chest pain [Unknown]
  - Ageusia [Unknown]
  - Abdominal pain upper [Not Recovered/Not Resolved]
  - Headache [Not Recovered/Not Resolved]

NARRATIVE: CASE EVENT DATE: 2018
